FAERS Safety Report 4445207-2 (Version None)
Quarter: 2004Q3

REPORT INFORMATION
  Report Type: 
  Country: None (occurrence: None)
  Receive Date: 20040819
  Receipt Date: 20030916
  Transmission Date: 20050211
  Serious: Yes (Hospitalization, Other)
  Sender: FDA-Public Use
  Company Number: 2003039097

PATIENT
  Age: 52 Year
  Sex: Male
  Weight: 129.7287 kg

DRUGS (8)
  1. NORVASC [Suspect]
     Indication: BLOOD PRESSURE
     Dosage: 5 MG (DAILY), ORAL
     Route: 048
     Dates: start: 20030101, end: 20030901
  2. LEVOTHYROXINE SODIUM [Concomitant]
  3. NISOLDIPINE (NISOLDIPINE) [Concomitant]
  4. LOSARTAN POTASSIUM [Concomitant]
  5. METOPROLOL TARTRATE [Concomitant]
  6. NICOTINIC ACID [Concomitant]
  7. PRAVASTATIN SODIUM [Concomitant]
  8. ASPIRIN [Concomitant]

REACTIONS (2)
  - ABDOMINAL PAIN UPPER [None]
  - MYOCARDIAL INFARCTION [None]
